FAERS Safety Report 21685965 (Version 3)
Quarter: 2024Q3

REPORT INFORMATION
  Report Type: Spontaneous
  Country: US (occurrence: US)
  Receive Date: 20221206
  Receipt Date: 20240705
  Transmission Date: 20241017
  Serious: No
  Sender: SANOFI AVENTIS
  Company Number: US-SA-SAC20221205000175

PATIENT
  Age: 48 Year
  Sex: Male
  Weight: 100 kg

DRUGS (11)
  1. DUPIXENT [Suspect]
     Active Substance: DUPILUMAB
     Indication: Chronic rhinosinusitis with nasal polyps
     Dosage: 300 MG, QOW
     Route: 058
     Dates: start: 20221013
  2. FLONASE ALLERGY RELIEF [Concomitant]
     Active Substance: FLUTICASONE PROPIONATE
  3. RISPERIDONE [Concomitant]
     Active Substance: RISPERIDONE
  4. LORAZEPAM [Concomitant]
     Active Substance: LORAZEPAM
  5. FENOFIBRATE [Concomitant]
     Active Substance: FENOFIBRATE
  6. KEPPRA [Concomitant]
     Active Substance: LEVETIRACETAM
  7. FLOMAX [Concomitant]
     Active Substance: TAMSULOSIN HYDROCHLORIDE
  8. BENZTROPINE MESYLATE [Concomitant]
     Active Substance: BENZTROPINE MESYLATE
  9. LITHIUM CARBONATE [Concomitant]
     Active Substance: LITHIUM CARBONATE
  10. CLONAZEPAM [Concomitant]
     Active Substance: CLONAZEPAM
  11. MYRBETRIQ [Concomitant]
     Active Substance: MIRABEGRON
     Dosage: ER 24H

REACTIONS (6)
  - Rhinorrhoea [Recovered/Resolved]
  - Paranasal sinus hypersecretion [Recovered/Resolved]
  - Upper-airway cough syndrome [Recovered/Resolved]
  - Rhinorrhoea [Unknown]
  - Skin discolouration [Unknown]
  - Rash [Unknown]

NARRATIVE: CASE EVENT DATE: 20221101
